FAERS Safety Report 5066602-7 (Version None)
Quarter: 2006Q3

REPORT INFORMATION
  Report Type: 
  Country: None (occurrence: None)
  Receive Date: 20060801
  Receipt Date: 20060719
  Transmission Date: 20061208
  Serious: Yes (Other)
  Sender: FDA-Public Use
  Company Number: DE-AMGEN-UK186601

PATIENT
  Sex: Female

DRUGS (1)
  1. MIMPARA [Suspect]
     Indication: DRUG USE FOR UNKNOWN INDICATION
     Route: 048
     Dates: start: 20060510, end: 20060621

REACTIONS (6)
  - HYPOCALCAEMIA [None]
  - PIGMENTATION DISORDER [None]
  - PORPHYRIA [None]
  - SKIN EXFOLIATION [None]
  - SKIN REACTION [None]
  - SKIN ULCER [None]
